FAERS Safety Report 4353547-0 (Version None)
Quarter: 2004Q2

REPORT INFORMATION
  Report Type: 
  Country: None (occurrence: None)
  Receive Date: 20040430
  Receipt Date: 20040419
  Transmission Date: 20050107
  Serious: Yes (Death, Hospitalization)
  Sender: FDA-Public Use
  Company Number: 2004PK00656

PATIENT
  Age: 66 Year
  Sex: Male

DRUGS (23)
  1. IRESSA [Suspect]
     Indication: COLORECTAL CANCER
     Dosage: 250 MG DAILY PO
     Route: 048
     Dates: start: 20040224, end: 20040406
  2. IRINOTECAN [Suspect]
     Indication: COLORECTAL CANCER
     Dosage: 420 MG DAILY PO
     Route: 048
     Dates: start: 20040224, end: 20040224
  3. IRINOTECAN [Suspect]
     Indication: COLORECTAL CANCER
     Dosage: 415 MG DAILY PO
     Route: 048
     Dates: start: 20040316, end: 20040316
  4. IRINOTECAN [Suspect]
     Indication: COLORECTAL CANCER
     Dosage: 305 MG DAILY PO
     Route: 048
     Dates: start: 20040406, end: 20040406
  5. CAPECITABINE [Suspect]
     Indication: COLORECTAL CANCER
     Dosage: 1500 MG DAILY PO
     Route: 048
     Dates: start: 20040224, end: 20040308
  6. CAPECITABINE [Suspect]
     Indication: COLORECTAL CANCER
     Dosage: 1500 MG DAILY PO
     Route: 048
     Dates: start: 20040316, end: 20040329
  7. CAPECITABINE [Suspect]
     Indication: COLORECTAL CANCER
     Dosage: 1100 MG DAILY PO
     Route: 048
     Dates: start: 20040406, end: 20040406
  8. NEXIUM [Concomitant]
  9. HUMAN INSULIN DEPOT [Concomitant]
  10. HUMAN INSULIN [Concomitant]
  11. LOPERAMIDE HCL [Concomitant]
  12. EMEND [Concomitant]
  13. TRAMAL [Concomitant]
  14. METOCLOPRAMIDE [Concomitant]
  15. VIOXX [Concomitant]
  16. KEVATRIL [Concomitant]
  17. DEXAMETHASONE [Concomitant]
  18. ATROPINE [Concomitant]
  19. ASPIRIN [Concomitant]
  20. NOCTAMID [Concomitant]
  21. MUNOBAL [Concomitant]
  22. ARANESP [Concomitant]
  23. NAVOBAN [Concomitant]

REACTIONS (8)
  - GENERAL PHYSICAL HEALTH DETERIORATION [None]
  - METASTASES TO LUNG [None]
  - METASTASES TO THORAX [None]
  - NEOPLASM PROGRESSION [None]
  - OEDEMA [None]
  - PULMONARY OEDEMA [None]
  - RENAL FAILURE [None]
  - RESPIRATORY FAILURE [None]
